FAERS Safety Report 9158395 (Version 1)
Quarter: 2013Q1

REPORT INFORMATION
  Report Type: Spontaneous
  Country: CN (occurrence: CN)
  Receive Date: 20130312
  Receipt Date: 20130312
  Transmission Date: 20140127
  Serious: Yes (Other)
  Sender: FDA-Public Use
  Company Number: CN-ROCHE-1199274

PATIENT
  Age: 40 Year
  Sex: Female

DRUGS (7)
  1. AVASTIN [Suspect]
     Indication: COLORECTAL CANCER METASTATIC
     Route: 065
  2. XELODA [Suspect]
     Indication: COLORECTAL CANCER METASTATIC
     Route: 065
  3. OXALIPLATIN [Concomitant]
     Indication: COLORECTAL CANCER METASTATIC
  4. LEUCOVORIN [Concomitant]
     Indication: COLORECTAL CANCER METASTATIC
  5. FLUOROURACIL [Concomitant]
     Indication: COLORECTAL CANCER METASTATIC
  6. IRINOTECAN [Concomitant]
     Indication: COLORECTAL CANCER METASTATIC
  7. RALTITREXED [Concomitant]
     Indication: COLORECTAL CANCER METASTATIC

REACTIONS (3)
  - Neoplasm progression [Unknown]
  - Metastases to liver [Unknown]
  - Diarrhoea [Unknown]
